FAERS Safety Report 6013757-3 (Version None)
Quarter: 2008Q4

REPORT INFORMATION
  Report Type: 
  Country: None (occurrence: None)
  Receive Date: 20081219
  Receipt Date: 20081210
  Transmission Date: 20090506
  Serious: Yes (Life-Threatening, Hospitalization)
  Sender: FDA-Public Use
  Company Number: B0549956A

PATIENT
  Age: 45 Year
  Sex: Male
  Weight: 91 kg

DRUGS (2)
  1. SERETIDE [Suspect]
     Indication: ASTHMA
     Route: 055
  2. ANDROTARDYL [Suspect]
     Indication: HYPOGONADISM MALE
     Dosage: .0333UNIT MONTHLY
     Route: 030

REACTIONS (4)
  - ABDOMINAL PAIN UPPER [None]
  - COLON CANCER [None]
  - METASTASES TO LIVER [None]
  - WEIGHT INCREASED [None]
